FAERS Safety Report 9170521 (Version 1)
Quarter: 2013Q1

REPORT INFORMATION
  Report Type: Spontaneous
  Country: US (occurrence: None)
  Receive Date: 20130307
  Receipt Date: 20130307
  Transmission Date: 20140127
  Serious: Yes (Other)
  Sender: FDA-Public Use
  Company Number: VAL_01441_2013

PATIENT
  Age: 48 Year
  Sex: Male

DRUGS (2)
  1. METOPROLOL [Suspect]
     Indication: HYPERTENSIVE EMERGENCY
     Dosage: (RECEIVED 3 IV BOLUSES INTRAVENOUS BOLUS)
  2. GLYCERYL TRINITRATE [Suspect]
     Indication: HYPERTENSIVE EMERGENCY
     Dosage: (DF INTRAVENOUS DRIP)

REACTIONS (1)
  - No adverse event [None]
